FAERS Safety Report 20179829 (Version 2)
Quarter: 2021Q4

REPORT INFORMATION
  Report Type: Spontaneous
  Country: TH (occurrence: TH)
  Receive Date: 20211214
  Receipt Date: 20211225
  Transmission Date: 20220303
  Serious: Yes (Other)
  Sender: FDA-Public Use
  Company Number: TH-NOVARTISPH-NVSC2021TH275038

PATIENT
  Age: 75 Year
  Sex: Male

DRUGS (92)
  1. SACUBITRIL\VALSARTAN [Suspect]
     Active Substance: SACUBITRIL\VALSARTAN
     Indication: Cardiac failure congestive
     Dosage: 200 MG, BID
     Route: 065
     Dates: start: 20200421
  2. SACUBITRIL\VALSARTAN [Suspect]
     Active Substance: SACUBITRIL\VALSARTAN
     Dosage: 200 MG, BID
     Route: 065
     Dates: start: 20200908
  3. SACUBITRIL\VALSARTAN [Suspect]
     Active Substance: SACUBITRIL\VALSARTAN
     Dosage: 200 MG, BID
     Route: 065
     Dates: start: 20201020
  4. SACUBITRIL\VALSARTAN [Suspect]
     Active Substance: SACUBITRIL\VALSARTAN
     Dosage: 200 MG, BID
     Route: 065
     Dates: start: 20201215
  5. SACUBITRIL\VALSARTAN [Suspect]
     Active Substance: SACUBITRIL\VALSARTAN
     Dosage: 200 MG, BID
     Route: 065
     Dates: start: 20210601
  6. SACUBITRIL\VALSARTAN [Suspect]
     Active Substance: SACUBITRIL\VALSARTAN
     Dosage: 200 MG, BID
     Route: 065
     Dates: start: 20211007
  7. CARVEDILOL [Concomitant]
     Active Substance: CARVEDILOL
     Indication: Product used for unknown indication
     Dosage: UNK UNK, BID (9.375)
     Route: 065
     Dates: start: 2018
  8. CARVEDILOL [Concomitant]
     Active Substance: CARVEDILOL
     Dosage: 12.5 MG, BID
     Route: 065
     Dates: start: 20190206
  9. CARVEDILOL [Concomitant]
     Active Substance: CARVEDILOL
     Dosage: 12.5 MG, BID
     Route: 065
     Dates: start: 20190304
  10. CARVEDILOL [Concomitant]
     Active Substance: CARVEDILOL
     Dosage: 12.5 MG, BID
     Route: 065
     Dates: start: 20190522
  11. CARVEDILOL [Concomitant]
     Active Substance: CARVEDILOL
     Dosage: 12.5 MG, BID
     Route: 065
     Dates: start: 20190924
  12. CARVEDILOL [Concomitant]
     Active Substance: CARVEDILOL
     Dosage: 12.5 MG, BID
     Route: 065
     Dates: start: 20191022
  13. CARVEDILOL [Concomitant]
     Active Substance: CARVEDILOL
     Dosage: 12.5 MG, BID
     Route: 065
     Dates: start: 20191119
  14. CARVEDILOL [Concomitant]
     Active Substance: CARVEDILOL
     Dosage: 12.5 MG, BID
     Route: 065
     Dates: start: 20200421
  15. CARVEDILOL [Concomitant]
     Active Substance: CARVEDILOL
     Dosage: 12.5 MG, BID
     Route: 065
     Dates: start: 20200908
  16. CARVEDILOL [Concomitant]
     Active Substance: CARVEDILOL
     Dosage: 12.5 MG, BID
     Route: 065
     Dates: start: 20201020
  17. CARVEDILOL [Concomitant]
     Active Substance: CARVEDILOL
     Dosage: 12.5 MG, BID
     Route: 065
     Dates: start: 20201215
  18. CARVEDILOL [Concomitant]
     Active Substance: CARVEDILOL
     Dosage: 12.5 MG, BID
     Route: 065
     Dates: start: 20210601
  19. CARVEDILOL [Concomitant]
     Active Substance: CARVEDILOL
     Dosage: 12.5 MG, BID
     Route: 065
     Dates: start: 20211007
  20. SPIRONOLACTONE [Concomitant]
     Active Substance: SPIRONOLACTONE
     Indication: Product used for unknown indication
     Dosage: 25 MG, QD
     Route: 065
     Dates: start: 2018
  21. SPIRONOLACTONE [Concomitant]
     Active Substance: SPIRONOLACTONE
     Dosage: 25 MG, QD
     Route: 065
     Dates: start: 20190206
  22. SPIRONOLACTONE [Concomitant]
     Active Substance: SPIRONOLACTONE
     Dosage: 25 MG, QD
     Route: 065
     Dates: start: 20190304
  23. SPIRONOLACTONE [Concomitant]
     Active Substance: SPIRONOLACTONE
     Dosage: 25 MG, QD
     Route: 065
     Dates: start: 20190522
  24. SPIRONOLACTONE [Concomitant]
     Active Substance: SPIRONOLACTONE
     Dosage: 25 MG, QD
     Route: 065
     Dates: start: 20190924
  25. SPIRONOLACTONE [Concomitant]
     Active Substance: SPIRONOLACTONE
     Dosage: 25 MG, QD
     Route: 065
     Dates: start: 20191022
  26. SPIRONOLACTONE [Concomitant]
     Active Substance: SPIRONOLACTONE
     Dosage: 25 MG, QD
     Route: 065
     Dates: start: 20191119
  27. SPIRONOLACTONE [Concomitant]
     Active Substance: SPIRONOLACTONE
     Dosage: 25 MG, QD
     Route: 065
     Dates: start: 20200421
  28. SPIRONOLACTONE [Concomitant]
     Active Substance: SPIRONOLACTONE
     Dosage: 25 MG, QD
     Route: 065
     Dates: start: 20200908
  29. SPIRONOLACTONE [Concomitant]
     Active Substance: SPIRONOLACTONE
     Dosage: 25 MG, QD
     Route: 065
     Dates: start: 20201020
  30. SPIRONOLACTONE [Concomitant]
     Active Substance: SPIRONOLACTONE
     Dosage: 25 MG, QD
     Route: 065
     Dates: start: 20201215
  31. SPIRONOLACTONE [Concomitant]
     Active Substance: SPIRONOLACTONE
     Dosage: 25 MG, QD
     Route: 065
     Dates: start: 20210601
  32. SPIRONOLACTONE [Concomitant]
     Active Substance: SPIRONOLACTONE
     Dosage: 25 MG, QD
     Route: 065
     Dates: start: 20211007
  33. EMPAGLIFLOZIN [Concomitant]
     Active Substance: EMPAGLIFLOZIN
     Indication: Product used for unknown indication
     Dosage: 10 MG, UNKNOWN
     Route: 065
     Dates: start: 20200908
  34. EMPAGLIFLOZIN [Concomitant]
     Active Substance: EMPAGLIFLOZIN
     Dosage: 10 MG, UNKNOWN
     Route: 065
     Dates: start: 20201020
  35. EMPAGLIFLOZIN [Concomitant]
     Active Substance: EMPAGLIFLOZIN
     Dosage: 10 MG, UNKNOWN
     Route: 065
     Dates: start: 20201215
  36. EMPAGLIFLOZIN [Concomitant]
     Active Substance: EMPAGLIFLOZIN
     Dosage: 10 MG, UNKNOWN
     Route: 065
     Dates: start: 20210601
  37. EMPAGLIFLOZIN [Concomitant]
     Active Substance: EMPAGLIFLOZIN
     Dosage: 10 MG, UNKNOWN
     Route: 065
     Dates: start: 20211007
  38. EZETIMIBE [Concomitant]
     Active Substance: EZETIMIBE
     Indication: Product used for unknown indication
     Dosage: 10 MG
     Route: 065
     Dates: start: 2018
  39. EZETIMIBE [Concomitant]
     Active Substance: EZETIMIBE
     Dosage: 10 MG
     Route: 065
     Dates: start: 20190206
  40. EZETIMIBE [Concomitant]
     Active Substance: EZETIMIBE
     Dosage: 10 MG
     Route: 065
     Dates: start: 20190304
  41. EZETIMIBE [Concomitant]
     Active Substance: EZETIMIBE
     Dosage: 10 MG
     Route: 065
     Dates: start: 20190522
  42. EZETIMIBE [Concomitant]
     Active Substance: EZETIMIBE
     Dosage: 10 MG
     Route: 065
     Dates: start: 20190924
  43. EZETIMIBE [Concomitant]
     Active Substance: EZETIMIBE
     Dosage: 10 MG
     Route: 065
     Dates: start: 20191022
  44. EZETIMIBE [Concomitant]
     Active Substance: EZETIMIBE
     Dosage: 10 MG
     Route: 065
     Dates: start: 20191119
  45. EZETIMIBE [Concomitant]
     Active Substance: EZETIMIBE
     Dosage: 10 MG
     Route: 065
     Dates: start: 20200421
  46. EZETIMIBE [Concomitant]
     Active Substance: EZETIMIBE
     Dosage: 10 MG
     Route: 065
     Dates: start: 20200908
  47. EZETIMIBE [Concomitant]
     Active Substance: EZETIMIBE
     Dosage: 10 MG
     Route: 065
     Dates: start: 20201020
  48. EZETIMIBE [Concomitant]
     Active Substance: EZETIMIBE
     Dosage: 10 MG
     Route: 065
     Dates: start: 20201215
  49. EZETIMIBE [Concomitant]
     Active Substance: EZETIMIBE
     Dosage: 10 MG
     Route: 065
     Dates: start: 20210601
  50. EZETIMIBE [Concomitant]
     Active Substance: EZETIMIBE
     Dosage: 10 MG
     Route: 065
     Dates: start: 20211007
  51. ATORVASTATIN [Concomitant]
     Active Substance: ATORVASTATIN
     Indication: Product used for unknown indication
     Dosage: 40 MG
     Route: 065
     Dates: start: 2018
  52. ATORVASTATIN [Concomitant]
     Active Substance: ATORVASTATIN
     Dosage: 40 MG
     Route: 065
     Dates: start: 20190206
  53. ATORVASTATIN [Concomitant]
     Active Substance: ATORVASTATIN
     Dosage: 40 MG
     Route: 065
     Dates: start: 20190304
  54. ATORVASTATIN [Concomitant]
     Active Substance: ATORVASTATIN
     Dosage: 40 MG
     Route: 065
     Dates: start: 20190522
  55. ATORVASTATIN [Concomitant]
     Active Substance: ATORVASTATIN
     Dosage: 40 MG
     Route: 065
     Dates: start: 20190924
  56. ATORVASTATIN [Concomitant]
     Active Substance: ATORVASTATIN
     Dosage: 40 MG
     Route: 065
     Dates: start: 20191022
  57. ATORVASTATIN [Concomitant]
     Active Substance: ATORVASTATIN
     Dosage: 60 MG
     Route: 065
     Dates: start: 20191119
  58. ATORVASTATIN [Concomitant]
     Active Substance: ATORVASTATIN
     Dosage: 60 MG
     Route: 065
     Dates: start: 20200421
  59. ATORVASTATIN [Concomitant]
     Active Substance: ATORVASTATIN
     Dosage: 60 MG
     Route: 065
     Dates: start: 20200908
  60. ATORVASTATIN [Concomitant]
     Active Substance: ATORVASTATIN
     Dosage: 60 MG
     Route: 065
     Dates: start: 20201020
  61. ATORVASTATIN [Concomitant]
     Active Substance: ATORVASTATIN
     Dosage: 60 MG
     Route: 065
     Dates: start: 20201215
  62. ATORVASTATIN [Concomitant]
     Active Substance: ATORVASTATIN
     Dosage: 60 MG
     Route: 065
     Dates: start: 20210601
  63. ATORVASTATIN [Concomitant]
     Active Substance: ATORVASTATIN
     Dosage: 60 MG
     Route: 065
     Dates: start: 20211007
  64. ASPIRIN [Concomitant]
     Active Substance: ASPIRIN
     Indication: Product used for unknown indication
     Dosage: UNK
     Route: 065
     Dates: start: 2018
  65. ASPIRIN [Concomitant]
     Active Substance: ASPIRIN
     Dosage: UNK
     Route: 065
     Dates: start: 20190206
  66. ASPIRIN [Concomitant]
     Active Substance: ASPIRIN
     Dosage: UNK
     Route: 065
     Dates: start: 20190304
  67. ASPIRIN [Concomitant]
     Active Substance: ASPIRIN
     Dosage: UNK
     Route: 065
     Dates: start: 20190522
  68. ASPIRIN [Concomitant]
     Active Substance: ASPIRIN
     Dosage: UNK
     Route: 065
     Dates: start: 20190924
  69. ASPIRIN [Concomitant]
     Active Substance: ASPIRIN
     Dosage: UNK
     Route: 065
     Dates: start: 20191022
  70. ASPIRIN [Concomitant]
     Active Substance: ASPIRIN
     Dosage: UNK
     Route: 065
     Dates: start: 20191119
  71. ASPIRIN [Concomitant]
     Active Substance: ASPIRIN
     Dosage: UNK
     Route: 065
     Dates: start: 20210601
  72. ASPIRIN [Concomitant]
     Active Substance: ASPIRIN
     Dosage: UNK
     Route: 065
     Dates: start: 20211007
  73. METFORMIN [Concomitant]
     Active Substance: METFORMIN HYDROCHLORIDE
     Indication: Product used for unknown indication
     Dosage: UNK
     Route: 065
     Dates: start: 2018
  74. METFORMIN [Concomitant]
     Active Substance: METFORMIN HYDROCHLORIDE
     Dosage: UNK
     Route: 065
     Dates: start: 20190206
  75. METFORMIN [Concomitant]
     Active Substance: METFORMIN HYDROCHLORIDE
     Dosage: UNK
     Route: 065
     Dates: start: 20190304
  76. METFORMIN [Concomitant]
     Active Substance: METFORMIN HYDROCHLORIDE
     Dosage: UNK
     Route: 065
     Dates: start: 20190522
  77. METFORMIN [Concomitant]
     Active Substance: METFORMIN HYDROCHLORIDE
     Dosage: UNK
     Route: 065
     Dates: start: 20190924
  78. METFORMIN [Concomitant]
     Active Substance: METFORMIN HYDROCHLORIDE
     Dosage: UNK
     Route: 065
     Dates: start: 20191022
  79. METFORMIN [Concomitant]
     Active Substance: METFORMIN HYDROCHLORIDE
     Dosage: UNK
     Route: 065
     Dates: start: 20191119
  80. OMEPRAZOLE [Concomitant]
     Active Substance: OMEPRAZOLE
     Indication: Product used for unknown indication
     Dosage: UNK
     Route: 065
     Dates: start: 2018
  81. OMEPRAZOLE [Concomitant]
     Active Substance: OMEPRAZOLE
     Dosage: UNK
     Route: 065
     Dates: start: 20190206
  82. OMEPRAZOLE [Concomitant]
     Active Substance: OMEPRAZOLE
     Dosage: UNK
     Route: 065
     Dates: start: 20190304
  83. OMEPRAZOLE [Concomitant]
     Active Substance: OMEPRAZOLE
     Dosage: UNK
     Route: 065
     Dates: start: 20190522
  84. OMEPRAZOLE [Concomitant]
     Active Substance: OMEPRAZOLE
     Dosage: UNK
     Route: 065
     Dates: start: 20190924
  85. OMEPRAZOLE [Concomitant]
     Active Substance: OMEPRAZOLE
     Dosage: UNK
     Route: 065
     Dates: start: 20191022
  86. OMEPRAZOLE [Concomitant]
     Active Substance: OMEPRAZOLE
     Dosage: UNK
     Route: 065
     Dates: start: 20191119
  87. OMEPRAZOLE [Concomitant]
     Active Substance: OMEPRAZOLE
     Dosage: UNK
     Route: 065
     Dates: start: 20210601
  88. OMEPRAZOLE [Concomitant]
     Active Substance: OMEPRAZOLE
     Dosage: UNK
     Route: 065
     Dates: start: 20211007
  89. GLIPIZIDE [Concomitant]
     Active Substance: GLIPIZIDE
     Indication: Product used for unknown indication
     Dosage: UNK
     Route: 065
     Dates: start: 20200421, end: 20200908
  90. SITAGLIPTIN [Concomitant]
     Active Substance: SITAGLIPTIN
     Indication: Product used for unknown indication
     Dosage: 50 MG, UNKNOWN
     Route: 065
     Dates: start: 20201215
  91. SITAGLIPTIN [Concomitant]
     Active Substance: SITAGLIPTIN
     Dosage: UNK
     Route: 065
     Dates: start: 20210601
  92. SITAGLIPTIN [Concomitant]
     Active Substance: SITAGLIPTIN
     Dosage: UNK
     Route: 065
     Dates: start: 20211007

REACTIONS (12)
  - Mitral valve incompetence [Unknown]
  - Cardiac failure chronic [Unknown]
  - Hyperkalaemia [Unknown]
  - Ejection fraction decreased [Unknown]
  - Walking distance test abnormal [Unknown]
  - Blood glucose increased [Unknown]
  - Glycosylated haemoglobin increased [Unknown]
  - Ventricular internal diameter abnormal [Unknown]
  - Left atrial enlargement [Unknown]
  - Hypotension [Unknown]
  - Blood creatine increased [Unknown]
  - Product prescribing error [Unknown]
